FAERS Safety Report 16759359 (Version 2)
Quarter: 2021Q2

REPORT INFORMATION
  Report Type: Spontaneous
  Country: CA (occurrence: CA)
  Receive Date: 20190830
  Receipt Date: 20210420
  Transmission Date: 20210716
  Serious: Yes (Other)
  Sender: FDA-Public Use
  Company Number: CA-MYLANLABS-2019M1081261

PATIENT
  Age: 47 Year
  Sex: Male

DRUGS (25)
  1. CYCLOPHOSPHAMIDE. [Suspect]
     Active Substance: CYCLOPHOSPHAMIDE
     Indication: CRYOGLOBULINAEMIA
     Dosage: 2 CYCLES
     Route: 042
  2. CYCLOPHOSPHAMIDE. [Suspect]
     Active Substance: CYCLOPHOSPHAMIDE
     Indication: GLOMERULONEPHRITIS MEMBRANOPROLIFERATIVE
  3. RITUXIMAB. [Concomitant]
     Active Substance: RITUXIMAB
     Indication: GLOMERULONEPHRITIS MEMBRANOPROLIFERATIVE
     Dosage: 1 GRAM REPEATED 2 WEEKS LATER
     Route: 042
     Dates: start: 2015
  4. METHYLPREDNISOLONE. [Concomitant]
     Active Substance: METHYLPREDNISOLONE
     Indication: GLOMERULONEPHRITIS MEMBRANOPROLIFERATIVE
  5. PREDNISONE. [Concomitant]
     Active Substance: PREDNISONE
     Indication: GLOMERULONEPHRITIS MEMBRANOPROLIFERATIVE
  6. METHYLPREDNISOLONE. [Concomitant]
     Active Substance: METHYLPREDNISOLONE
     Indication: CRYOGLOBULINAEMIA
     Dosage: UNK
     Route: 042
     Dates: start: 2015
  7. LEDIPASVIR [Concomitant]
     Active Substance: LEDIPASVIR
     Indication: HEPATITIS C
     Dosage: UNK
     Route: 065
     Dates: start: 2015
  8. SOFOSBUVIR [Concomitant]
     Active Substance: SOFOSBUVIR
     Indication: HEPATITIS C
     Dosage: UNK
     Route: 065
     Dates: start: 2015
  9. OBINUTUZUMAB. [Concomitant]
     Active Substance: OBINUTUZUMAB
     Indication: GLOMERULONEPHRITIS MEMBRANOPROLIFERATIVE
     Dosage: 3 DOSAGE FORM (8 WEEK)
     Route: 065
  10. BENDAMUSTINE [Suspect]
     Active Substance: BENDAMUSTINE
     Indication: CRYOGLOBULINAEMIA
     Dosage: UNK
     Route: 065
  11. BENDAMUSTINE [Suspect]
     Active Substance: BENDAMUSTINE
     Indication: GLOMERULONEPHRITIS MEMBRANOPROLIFERATIVE
  12. RITUXIMAB. [Concomitant]
     Active Substance: RITUXIMAB
     Indication: CRYOGLOBULINAEMIA
     Dosage: 4 DOSES
     Route: 042
     Dates: start: 2015
  13. RITUXIMAB. [Concomitant]
     Active Substance: RITUXIMAB
     Dosage: 375 MILLIGRAM/SQ. METER 4 DOSES WERE GIVEN...
     Route: 042
  14. LEDIPASVIR [Concomitant]
     Active Substance: LEDIPASVIR
     Indication: GLOMERULONEPHRITIS MEMBRANOPROLIFERATIVE
  15. DEXAMETHASONE. [Suspect]
     Active Substance: DEXAMETHASONE
     Indication: GLOMERULONEPHRITIS MEMBRANOPROLIFERATIVE
  16. FUROSEMIDE. [Suspect]
     Active Substance: FUROSEMIDE
     Indication: GLOMERULONEPHRITIS MEMBRANOPROLIFERATIVE
  17. PREDNISONE. [Concomitant]
     Active Substance: PREDNISONE
     Indication: CRYOGLOBULINAEMIA
     Dosage: WITH TAPER
     Route: 048
     Dates: start: 2015
  18. OBINUTUZUMAB. [Concomitant]
     Active Substance: OBINUTUZUMAB
     Indication: CRYOGLOBULINAEMIA
     Dosage: 4 DOSAGE FORM, Q3W
     Route: 065
  19. SOFOSBUVIR [Concomitant]
     Active Substance: SOFOSBUVIR
     Indication: GLOMERULONEPHRITIS MEMBRANOPROLIFERATIVE
  20. AZATHIOPRINE. [Concomitant]
     Active Substance: AZATHIOPRINE
     Indication: GLOMERULONEPHRITIS MEMBRANOPROLIFERATIVE
     Dosage: 350 MILLIGRAM, QD INITIAL DOSAGE NOT STATED..
     Route: 065
     Dates: start: 201704
  21. DEXAMETHASONE. [Suspect]
     Active Substance: DEXAMETHASONE
     Indication: CRYOGLOBULINAEMIA
     Dosage: 2 CYCLES
     Route: 065
  22. BORTEZOMIB. [Suspect]
     Active Substance: BORTEZOMIB
     Indication: CRYOGLOBULINAEMIA
     Dosage: 2 CYCLES
     Route: 065
  23. BORTEZOMIB. [Suspect]
     Active Substance: BORTEZOMIB
     Indication: GLOMERULONEPHRITIS MEMBRANOPROLIFERATIVE
  24. AZATHIOPRINE. [Concomitant]
     Active Substance: AZATHIOPRINE
     Indication: CRYOGLOBULINAEMIA
     Dosage: UNK INITIAL DOSAGE NOT STATED
     Route: 065
  25. FUROSEMIDE. [Suspect]
     Active Substance: FUROSEMIDE
     Indication: OEDEMA PERIPHERAL
     Dosage: INITIAL DOSAGE NOT STATED BUT WAS TAPERED TO 80MG TWICE A DAY
     Route: 048

REACTIONS (1)
  - Drug ineffective [Unknown]
